FAERS Safety Report 16039867 (Version 1)
Quarter: 2019Q1

REPORT INFORMATION
  Report Type: Spontaneous
  Country: US (occurrence: US)
  Receive Date: 20190206
  Receipt Date: 20190206
  Transmission Date: 20190418
  Serious: No
  Sender: FDA-Public Use
  Company Number: None

PATIENT
  Age: 86 Year
  Sex: Female
  Weight: 82.55 kg

DRUGS (22)
  1. VITAMIN C [Concomitant]
     Active Substance: ASCORBIC ACID
  2. JOINT PILL [Concomitant]
  3. STOOL SOFTER [Concomitant]
  4. IRBESARTAN. [Suspect]
     Active Substance: IRBESARTAN
     Indication: HYPERTENSION
     Dosage: ?          QUANTITY:300 MG MILLIGRAM(S);?
     Route: 048
     Dates: start: 201801, end: 20190129
  5. LOSARTAN. [Concomitant]
     Active Substance: LOSARTAN
  6. KLOR-CONM20 [Concomitant]
  7. IRBESARTAN/HCTZ [Suspect]
     Active Substance: HYDROCHLOROTHIAZIDE\IRBESARTAN
  8. GLUCOSAMINE CHONDROITIN [Concomitant]
     Active Substance: CHONDROITIN SULFATE (BOVINE)\GLUCOSAMINE HYDROCHLORIDE
  9. FLAXSEED [Concomitant]
     Active Substance: FLAX SEED
  10. FUROSEMIDE. [Concomitant]
     Active Substance: FUROSEMIDE
  11. PRAVASTATIN. [Concomitant]
     Active Substance: PRAVASTATIN
  12. LEVOTHYROXIN [Concomitant]
     Active Substance: LEVOTHYROXINE
  13. CALCIUM [Concomitant]
     Active Substance: CALCIUM
  14. CALCITRIOL. [Concomitant]
     Active Substance: CALCITRIOL
  15. ASPIRIN. [Concomitant]
     Active Substance: ASPIRIN
  16. POTASSIUM [Concomitant]
     Active Substance: POTASSIUM
  17. OMEGA FISH OIL [Concomitant]
     Active Substance: FISH OIL\OMEGA-3 FATTY ACIDS
  18. UHE RED YEAST RICE CRANBERRY [Concomitant]
  19. IRBESARTAN/HCTZ [Suspect]
     Active Substance: HYDROCHLOROTHIAZIDE\IRBESARTAN
  20. METOPROLOL. [Concomitant]
     Active Substance: METOPROLOL
  21. COD LIVER OIL [Concomitant]
     Active Substance: COD LIVER OIL
  22. VITAMIN D3 [Concomitant]
     Active Substance: CHOLECALCIFEROL

REACTIONS (2)
  - Rectal haemorrhage [None]
  - Recalled product administered [None]

NARRATIVE: CASE EVENT DATE: 201801
